FAERS Safety Report 5002174-0 (Version None)
Quarter: 2006Q2

REPORT INFORMATION
  Report Type: 
  Country: None (occurrence: None)
  Receive Date: 20060510
  Receipt Date: 20060424
  Transmission Date: 20061013
  Serious: Yes (Other)
  Sender: FDA-Public Use
  Company Number: TRP_0730_2006

PATIENT
  Age: 45 Year
  Sex: Female
  Weight: 70.3075 kg

DRUGS (5)
  1. RIBASPHERE [Suspect]
     Indication: HEPATITIS C
     Dosage: 1000 MG QDAY PO
     Route: 048
     Dates: start: 20051226, end: 20060301
  2. PEG-INTRON [Suspect]
     Indication: HEPATITIS C
     Dosage: 150 MCG QWK SC
     Route: 058
     Dates: start: 20051226, end: 20060301
  3. ACETAMINOPHEN AND HYDROCODONE BITARTRATE [Concomitant]
  4. PERCOCET [Concomitant]
  5. TRAZODONE HCL [Concomitant]

REACTIONS (7)
  - AGITATION [None]
  - CRYING [None]
  - HALLUCINATION, AUDITORY [None]
  - MENTAL DISORDER [None]
  - SELF-INJURIOUS IDEATION [None]
  - SUICIDAL IDEATION [None]
  - UNEVALUABLE EVENT [None]
